FAERS Safety Report 6534417-6 (Version None)
Quarter: 2010Q1

REPORT INFORMATION
  Report Type: 
  Country: None (occurrence: None)
  Receive Date: 20100108
  Receipt Date: 20100108
  Transmission Date: 20100710
  Serious: Yes (Life-Threatening, Hospitalization)
  Sender: FDA-Public Use
  Company Number: None

PATIENT
  Age: 76 Year
  Sex: Male
  Weight: 97.52 kg

DRUGS (2)
  1. FENTANYL [Suspect]
     Indication: SEDATIVE THERAPY
     Dosage: 100 MCG ONCE IV
     Route: 042
     Dates: start: 20091113, end: 20091113
  2. MIDAZOLAM HCL [Suspect]
     Indication: SEDATIVE THERAPY
     Dosage: 2 MG ONCE IV
     Route: 042
     Dates: start: 20091113, end: 20091113

REACTIONS (3)
  - BRADYCARDIA [None]
  - CARDIAC ARREST [None]
  - HYPOTENSION [None]
